FAERS Safety Report 9249896 (Version 1)
Quarter: 2013Q2

REPORT INFORMATION
  Report Type: Spontaneous
  Country: GB (occurrence: GB)
  Receive Date: 20130423
  Receipt Date: 20130423
  Transmission Date: 20140414
  Serious: Yes (Life-Threatening, Hospitalization, Disabling)
  Sender: FDA-Public Use
  Company Number: GB-MYLANLABS-2013S1007878

PATIENT
  Age: 85 Year
  Sex: Female

DRUGS (10)
  1. CLOPIDOGREL [Suspect]
     Indication: CEREBROVASCULAR ACCIDENT
     Route: 048
     Dates: start: 20130321, end: 20130324
  2. ASPIRIN [Suspect]
     Indication: PROPHYLAXIS
     Route: 048
     Dates: end: 20130324
  3. ASPIRIN [Suspect]
     Indication: PROPHYLAXIS
     Route: 048
  4. ASPIRIN [Suspect]
     Indication: PROPHYLAXIS
     Route: 048
  5. CLEXANE [Suspect]
     Indication: PROPHYLAXIS
     Route: 058
     Dates: start: 20130316, end: 20130317
  6. PRADAXA [Suspect]
     Indication: PROPHYLAXIS
     Route: 048
     Dates: start: 20130316, end: 20130317
  7. GABAPENTIN [Concomitant]
     Indication: PRODUCT USED FOR UNKNOWN INDICATION
     Route: 048
  8. PARACETAMOL [Concomitant]
     Indication: PRODUCT USED FOR UNKNOWN INDICATION
     Route: 048
  9. RAMIPRIL [Concomitant]
     Indication: PRODUCT USED FOR UNKNOWN INDICATION
     Route: 048
  10. SIMVASTATIN [Concomitant]
     Indication: PRODUCT USED FOR UNKNOWN INDICATION
     Route: 048

REACTIONS (2)
  - Ischaemic stroke [Not Recovered/Not Resolved]
  - Rectal haemorrhage [Not Recovered/Not Resolved]
